FAERS Safety Report 6370557-2 (Version None)
Quarter: 2009Q3

REPORT INFORMATION
  Report Type: 
  Country: None (occurrence: None)
  Receive Date: 20090923
  Receipt Date: 20090915
  Transmission Date: 20100115
  Serious: Yes (Hospitalization)
  Sender: FDA-Public Use
  Company Number: A0808375A

PATIENT
  Age: 55 Year
  Sex: Female

DRUGS (2)
  1. AVANDAMET [Suspect]
     Route: 065
     Dates: start: 20040622, end: 20050701
  2. AVANDIA [Suspect]
     Dosage: 4MG TWICE PER DAY
     Route: 065
     Dates: start: 20050701, end: 20070326

REACTIONS (4)
  - ANGINA UNSTABLE [None]
  - CORONARY ARTERY DISEASE [None]
  - HYPERLIPIDAEMIA [None]
  - WEIGHT INCREASED [None]
